FAERS Safety Report 21961415 (Version 1)
Quarter: 2023Q1

REPORT INFORMATION
  Report Type: Other
  Country: CN (occurrence: None)
  Receive Date: 20230207
  Receipt Date: 20230207
  Transmission Date: 20230417
  Serious: Yes (Death, Other)
  Sender: FDA-Public Use
  Company Number: CN-ROCHE-3074554

PATIENT
  Age: 69 Year
  Sex: Male
  Weight: 60 kg

DRUGS (2)
  1. AVASTIN [Suspect]
     Active Substance: BEVACIZUMAB
     Indication: Non-small cell lung cancer
     Route: 041
     Dates: start: 20170329, end: 20220823
  2. AVASTIN [Suspect]
     Active Substance: BEVACIZUMAB
     Route: 041

REACTIONS (5)
  - Pulmonary mass [Not Recovered/Not Resolved]
  - Movement disorder [Unknown]
  - Pneumonia [Unknown]
  - Cough [Unknown]
  - Pneumonia [Fatal]

NARRATIVE: CASE EVENT DATE: 20220315
